FAERS Safety Report 14657452 (Version 1)
Quarter: 2018Q1

REPORT INFORMATION
  Report Type: Spontaneous
  Country: US (occurrence: US)
  Receive Date: 20180320
  Receipt Date: 20180320
  Transmission Date: 20180509
  Serious: No
  Sender: FDA-Public Use
  Company Number: PHEH2018US010118

PATIENT
  Sex: Female

DRUGS (1)
  1. AZOPT [Suspect]
     Active Substance: BRINZOLAMIDE
     Indication: PRODUCT USED FOR UNKNOWN INDICATION
     Route: 047

REACTIONS (7)
  - Musculoskeletal stiffness [Unknown]
  - Back pain [Unknown]
  - Pain [Unknown]
  - Breast pain [Unknown]
  - Chest pain [Unknown]
  - Vision blurred [Unknown]
  - Dysgeusia [Unknown]
